FAERS Safety Report 13523534 (Version 1)
Quarter: 2017Q2

REPORT INFORMATION
  Report Type: Spontaneous
  Country: US (occurrence: US)
  Receive Date: 20170508
  Receipt Date: 20170508
  Transmission Date: 20170830
  Serious: No
  Sender: FDA-Public Use
  Company Number: US-VIFOR (INTERNATIONAL) INC.-VIT-2017-01655

PATIENT
  Sex: Female

DRUGS (9)
  1. POTASSIUM [Concomitant]
     Active Substance: POTASSIUM
  2. ASCORBIC ACID. [Concomitant]
     Active Substance: ASCORBIC ACID
  3. TRAMADOL. [Concomitant]
     Active Substance: TRAMADOL
  4. BACLOFEN. [Concomitant]
     Active Substance: BACLOFEN
  5. VELTASSA [Suspect]
     Active Substance: PATIROMER
     Indication: HYPERKALAEMIA
     Route: 048
     Dates: start: 20170123
  6. ERGOCALCIFEROL. [Concomitant]
     Active Substance: ERGOCALCIFEROL
  7. VALIUM [Concomitant]
     Active Substance: DIAZEPAM
  8. FISH OIL [Concomitant]
     Active Substance: FISH OIL
  9. CALCIUM [Concomitant]
     Active Substance: CALCIUM

REACTIONS (2)
  - Rash [Unknown]
  - Pruritus [Unknown]

NARRATIVE: CASE EVENT DATE: 2017
